FAERS Safety Report 9083753 (Version 1)
Quarter: 2013Q1

REPORT INFORMATION
  Report Type: Spontaneous
  Country: US (occurrence: US)
  Receive Date: 20130130
  Receipt Date: 20130130
  Transmission Date: 20140127
  Serious: Yes (Other)
  Sender: FDA-Public Use
  Company Number: US-PFIZER INC-2013037189

PATIENT
  Age: 60 Year
  Sex: Male
  Weight: 90.7 kg

DRUGS (2)
  1. SUTENT [Suspect]
     Indication: RENAL CANCER
     Dosage: UNK, ONCE DAILY
     Route: 048
     Dates: start: 201301
  2. OXYCODONE [Concomitant]
     Indication: PAIN
     Dosage: UNK

REACTIONS (6)
  - Hypoacusis [Not Recovered/Not Resolved]
  - Abnormal behaviour [Unknown]
  - Mental status changes [Unknown]
  - Memory impairment [Unknown]
  - Amnesia [Unknown]
  - Balance disorder [Unknown]
